FAERS Safety Report 22241994 (Version 3)
Quarter: 2023Q2

REPORT INFORMATION
  Report Type: Report from Study
  Country: US (occurrence: US)
  Receive Date: 20230421
  Receipt Date: 20230630
  Transmission Date: 20230721
  Serious: Yes (Hospitalization)
  Sender: FDA-Public Use
  Company Number: US-002147023-NVSC2023US092012

PATIENT
  Sex: Female

DRUGS (2)
  1. KISQALI [Suspect]
     Active Substance: RIBOCICLIB
     Indication: Breast cancer
     Dosage: 600 MG, QD
     Route: 048
     Dates: start: 20230414
  2. KISQALI [Suspect]
     Active Substance: RIBOCICLIB
     Dosage: 400 MG
     Route: 065

REACTIONS (10)
  - Pyrexia [Unknown]
  - Pneumonia [Unknown]
  - Abdominal discomfort [Unknown]
  - Blood sodium abnormal [Unknown]
  - Blood potassium abnormal [Unknown]
  - Blood creatinine increased [Unknown]
  - Dehydration [Unknown]
  - Diarrhoea [Unknown]
  - Fatigue [Unknown]
  - Product dose omission issue [Unknown]
